FAERS Safety Report 25735250 (Version 1)
Quarter: 2025Q3

REPORT INFORMATION
  Report Type: Spontaneous
  Country: US (occurrence: US)
  Receive Date: 20250828
  Receipt Date: 20250828
  Transmission Date: 20251020
  Serious: No
  Sender: BRISTOL-MYERS SQUIBB COMPANY
  Company Number: US-BRISTOL-MYERS SQUIBB COMPANY-2025-119170

PATIENT
  Age: 71 Year
  Sex: Male

DRUGS (1)
  1. LENALIDOMIDE [Suspect]
     Active Substance: LENALIDOMIDE
     Indication: Pain
     Dosage: TAKE 1 CAPSULE BY MOUTH WITH WATER 1 HR AFTER A MEAL EVERY DAY FOR 21 DAYS WITH 7 DAYS OFF
     Route: 048

REACTIONS (1)
  - Product dose omission issue [Unknown]
